FAERS Safety Report 9792873 (Version 2)
Quarter: 2019Q2

REPORT INFORMATION
  Report Type: Report from Study
  Country: US (occurrence: US)
  Receive Date: 20140102
  Receipt Date: 20190401
  Transmission Date: 20190711
  Serious: Yes (Hospitalization, Other)
  Sender: FDA-Public Use
  Company Number: US-SA-2013SA117561

PATIENT
  Age: 57 Year
  Sex: Male
  Weight: 79.3 kg

DRUGS (15)
  1. INDOMETACIN [Concomitant]
     Active Substance: INDOMETHACIN
     Dosage: STRENGTH: 50 MG
  2. VITAMINS NOS [Concomitant]
     Active Substance: VITAMINS
     Dosage: UNK
  3. VITAMIN D3 [Concomitant]
     Active Substance: CHOLECALCIFEROL
     Dosage: STRENGTH: 1000 UNIT
  4. TERIFLUNOMIDE. [Suspect]
     Active Substance: TERIFLUNOMIDE
     Indication: MULTIPLE SCLEROSIS
     Dosage: 14 MG,QD
     Route: 048
     Dates: start: 20130503, end: 20180301
  5. PRAMIPEXOLE. [Concomitant]
     Active Substance: PRAMIPEXOLE
     Dosage: STRENGTH: 0.5 MG
  6. ESCITALOPRAM [Concomitant]
     Active Substance: ESCITALOPRAM OXALATE
     Dosage: STRENGTH: 20 MG
  7. METHADONE [Concomitant]
     Active Substance: METHADONE HYDROCHLORIDE
     Dosage: STRENGTH: 5 MG
  8. ATORVASTATIN [Concomitant]
     Active Substance: ATORVASTATIN
     Dosage: STRENGTH: 10 MG
  9. VESICARE [Concomitant]
     Active Substance: SOLIFENACIN SUCCINATE
     Dosage: UNK
  10. OCREVUS [Suspect]
     Active Substance: OCRELIZUMAB
     Dosage: UNK
     Dates: start: 20190105, end: 20190202
  11. AMLODIPINE [Concomitant]
     Active Substance: AMLODIPINE BESYLATE
     Dosage: STRENGTH: 10 MG
  12. MAGNESIUM [Concomitant]
     Active Substance: MAGNESIUM
     Dosage: STRENGTH: 200 MG
  13. DEXILANT [Concomitant]
     Active Substance: DEXLANSOPRAZOLE
     Dosage: STRENGTH: 60 MG DELAY RELEASE CAPSULE
  14. TRAZODONE [Concomitant]
     Active Substance: TRAZODONE HYDROCHLORIDE
     Dosage: UNK
  15. ASA [Concomitant]
     Active Substance: ASPIRIN
     Dosage: LOW DOSE TABLET STRENGTH: 81 MG ENTERIC COATED TABLET

REACTIONS (22)
  - Hospitalisation [Recovered/Resolved]
  - Tremor [Unknown]
  - Eye pain [Unknown]
  - Musculoskeletal chest pain [Not Recovered/Not Resolved]
  - Blister [Recovered/Resolved]
  - Hypersensitivity [Unknown]
  - Rash erythematous [Unknown]
  - Type 2 diabetes mellitus [Not Recovered/Not Resolved]
  - Surgery [Unknown]
  - Headache [Unknown]
  - Urticaria [Recovered/Resolved]
  - Nodule [Unknown]
  - Vascular occlusion [Not Recovered/Not Resolved]
  - Visual impairment [Unknown]
  - Skin reaction [Unknown]
  - Coronary artery bypass [Recovered/Resolved]
  - Depression [Unknown]
  - Stress [Unknown]
  - Memory impairment [Unknown]
  - Hypoaesthesia [Unknown]
  - Blood pressure diastolic increased [Not Recovered/Not Resolved]
  - Chest pain [Not Recovered/Not Resolved]

NARRATIVE: CASE EVENT DATE: 20131101
